FAERS Safety Report 17388904 (Version 7)
Quarter: 2024Q2

REPORT INFORMATION
  Report Type: Spontaneous
  Country: US (occurrence: US)
  Receive Date: 20200207
  Receipt Date: 20240405
  Transmission Date: 20240715
  Serious: Yes (Other)
  Sender: FDA-Public Use
  Company Number: US-PFIZER INC-2019548254

PATIENT
  Age: 57 Year
  Sex: Female

DRUGS (1)
  1. XELJANZ XR [Suspect]
     Active Substance: TOFACITINIB CITRATE
     Indication: Rheumatoid arthritis
     Dosage: 11 MG, DAILY

REACTIONS (10)
  - Fall [Unknown]
  - Back injury [Unknown]
  - Lumbar vertebral fracture [Unknown]
  - Spinal operation [Unknown]
  - Neuralgia [Unknown]
  - Feeling abnormal [Unknown]
  - Fear of death [Unknown]
  - Memory impairment [Unknown]
  - Illness [Unknown]
  - Finger deformity [Unknown]

NARRATIVE: CASE EVENT DATE: 20220401
